FAERS Safety Report 18517949 (Version 1)
Quarter: 2020Q4

REPORT INFORMATION
  Report Type: Spontaneous
  Country: IQ (occurrence: IQ)
  Receive Date: 20201118
  Receipt Date: 20201118
  Transmission Date: 20210114
  Serious: Yes (Hospitalization)
  Sender: FDA-Public Use
  Company Number: NVSC2020IQ304343

PATIENT

DRUGS (1)
  1. TEGRETOL [Suspect]
     Active Substance: CARBAMAZEPINE
     Indication: EPILEPSY
     Dosage: UNK (1 BOTTLE IN 1 HR)
     Route: 065

REACTIONS (5)
  - Nausea [Unknown]
  - Abdominal pain [Unknown]
  - Discomfort [Unknown]
  - Accidental overdose [Unknown]
  - Somnolence [Unknown]
